FAERS Safety Report 5303313-4 (Version None)
Quarter: 2007Q2

REPORT INFORMATION
  Report Type: 
  Country: None (occurrence: None)
  Receive Date: 20070420
  Receipt Date: 20070416
  Transmission Date: 20071010
  Serious: Yes (Disabling, Other)
  Sender: FDA-Public Use
  Company Number: JP-JPN-A200701798

PATIENT
  Age: 12 Year
  Sex: Female
  Weight: 44 kg

DRUGS (3)
  1. ALKERAN [Suspect]
     Indication: STEM CELL TRANSPLANT
     Dosage: 70MG PER DAY
     Route: 042
     Dates: start: 20060112, end: 20060120
  2. THIOTEPA [Suspect]
     Indication: STEM CELL TRANSPLANT
     Dosage: 200MG PER DAY
     Dates: start: 20060112, end: 20060120
  3. GRAN [Concomitant]
     Dates: start: 20060128, end: 20060206

REACTIONS (5)
  - DIARRHOEA [None]
  - ORAL PAIN [None]
  - SEPSIS [None]
  - STOMATITIS [None]
  - WHITE BLOOD CELL DISORDER [None]
